FAERS Safety Report 9206690 (Version 1)
Quarter: 2013Q1

REPORT INFORMATION
  Report Type: Spontaneous
  Country: US (occurrence: None)
  Receive Date: 20120718
  Receipt Date: 20120718
  Transmission Date: 20140127
  Serious: Yes (Death, Life-Threatening, Hospitalization, Other)
  Sender: FDA-Public Use
  Company Number: 2011SP052087

PATIENT
  Age: 83 Year
  Sex: Male

DRUGS (5)
  1. INTEGRILIN [Suspect]
     Indication: CORONARY ARTERY DISEASE
     Dates: start: 2011
  2. INTEGRILIN [Suspect]
     Indication: PERCUTANEOUS CORONARY INTERVENTION
     Dates: start: 2011
  3. HEPARIN [Concomitant]
  4. ASPIRIN [Concomitant]
  5. PLAVIX [Concomitant]

REACTIONS (1)
  - Pulmonary alveolar haemorrhage [None]
